FAERS Safety Report 23428956 (Version 1)
Quarter: 2024Q1

REPORT INFORMATION
  Report Type: Spontaneous
  Country: FR (occurrence: FR)
  Receive Date: 20240122
  Receipt Date: 20240122
  Transmission Date: 20240410
  Serious: Yes (Death, Other)
  Sender: FDA-Public Use
  Company Number: None

PATIENT
  Age: 72 Year
  Sex: Female
  Weight: 71 kg

DRUGS (2)
  1. ISONIAZID\RIFAMPIN [Suspect]
     Active Substance: ISONIAZID\RIFAMPIN
     Indication: Pulmonary tuberculosis
     Dosage: 2 DF, QD
     Route: 048
     Dates: start: 20230808, end: 20231004
  2. RIFATER [Suspect]
     Active Substance: ISONIAZID\PYRAZINAMIDE\RIFAMPIN
     Indication: Pulmonary tuberculosis
     Dosage: 6 DF, QD
     Route: 048
     Dates: start: 20230606, end: 20230807

REACTIONS (3)
  - Hyperbilirubinaemia [Fatal]
  - Hepatic failure [Fatal]
  - Hepatic cytolysis [Fatal]

NARRATIVE: CASE EVENT DATE: 20230926
